FAERS Safety Report 4398269-5 (Version None)
Quarter: 2004Q3

REPORT INFORMATION
  Report Type: 
  Country: None (occurrence: None)
  Receive Date: 20040715
  Receipt Date: 20040705
  Transmission Date: 20050211
  Serious: Yes (Other)
  Sender: FDA-Public Use
  Company Number: PHFR2004GB02734

PATIENT
  Age: 27 Year
  Sex: Female

DRUGS (2)
  1. VOLTAREN [Suspect]
     Dosage: 50 MG, TID
     Route: 048
     Dates: start: 20040614, end: 20040617
  2. DIANETTE [Concomitant]
     Dosage: 1/DAY

REACTIONS (3)
  - AMNESIA [None]
  - DISORIENTATION [None]
  - DIZZINESS [None]
